FAERS Safety Report 7282085-0 (Version None)
Quarter: 2011Q1

REPORT INFORMATION
  Report Type: 
  Country: None (occurrence: None)
  Receive Date: 20110208
  Receipt Date: 20110207
  Transmission Date: 20110831
  Serious: Yes (Hospitalization)
  Sender: FDA-Public Use
  Company Number: CA-ABBOTT-10P-028-0684912-00

PATIENT
  Sex: Male
  Weight: 54.48 kg

DRUGS (1)
  1. MAVIK [Suspect]
     Indication: ESSENTIAL HYPERTENSION
     Dosage: DOSE INITIATED: 1MG PER DAY
     Route: 048
     Dates: start: 20100607

REACTIONS (1)
  - HOSPITALISATION [None]
